FAERS Safety Report 7227037-1 (Version None)
Quarter: 2011Q1

REPORT INFORMATION
  Report Type: 
  Country: None (occurrence: None)
  Receive Date: 20110105
  Receipt Date: 20101220
  Transmission Date: 20110831
  Serious: Yes (Other)
  Sender: FDA-Public Use
  Company Number: 2010SP065489

PATIENT
  Age: 67 Year
  Sex: Female

DRUGS (9)
  1. LEVOTHYROX (LEVOTHYROXINE SODIUM /00068002/) [Suspect]
     Indication: PRODUCT USED FOR UNKNOWN INDICATION
     Dosage: ; PO
     Route: 048
  2. CHLORHEXIDINE (CHLORHEXIDINE) [Suspect]
     Dosage: ; PO
     Route: 048
     Dates: start: 20100901
  3. DEXERYL (OSINEX) [Suspect]
     Indication: PRODUCT USED FOR UNKNOWN INDICATION
     Dosage: ; TOP
     Route: 061
     Dates: start: 20100901
  4. IMODIUM [Suspect]
     Indication: PRODUCT USED FOR UNKNOWN INDICATION
     Dosage: ; PO
     Route: 048
     Dates: start: 20100901
  5. AFINITOR (EVEROLIMUS) [Suspect]
     Indication: RENAL CANCER METASTATIC
     Dosage: 10 MG; QD; PO
     Route: 048
     Dates: start: 20100801, end: 20101125
  6. SUTENT [Concomitant]
  7. FOSAMAX [Suspect]
     Indication: PRODUCT USED FOR UNKNOWN INDICATION
     Dosage: ; PO
     Route: 048
  8. CLARITIN [Suspect]
     Indication: RASH
     Dosage: ; PO
     Route: 048
     Dates: start: 20100929
  9. NEXIUM [Suspect]
     Indication: PRODUCT USED FOR UNKNOWN INDICATION
     Dosage: ; PO
     Route: 048
     Dates: start: 20100901

REACTIONS (5)
  - COUGH [None]
  - RASH [None]
  - PYREXIA [None]
  - INTERSTITIAL LUNG DISEASE [None]
  - ASTHENIA [None]
